FAERS Safety Report 25359922 (Version 1)
Quarter: 2025Q2

REPORT INFORMATION
  Report Type: Spontaneous
  Country: CN (occurrence: CN)
  Receive Date: 20250526
  Receipt Date: 20250526
  Transmission Date: 20250717
  Serious: Yes (Other)
  Sender: BEIGENE
  Company Number: CN-BEIGENE-BGN-2025-008055

PATIENT

DRUGS (1)
  1. BRUKINSA [Suspect]
     Active Substance: ZANUBRUTINIB
     Indication: Lymphoma

REACTIONS (5)
  - Pulmonary fibrosis [Unknown]
  - Lymphadenopathy [Unknown]
  - Lymph node pain [Unknown]
  - Electric shock sensation [Unknown]
  - Musculoskeletal pain [Unknown]
